FAERS Safety Report 4808418-X (Version None)
Quarter: 2005Q4

REPORT INFORMATION
  Report Type: 
  Country: None (occurrence: None)
  Receive Date: 20051025
  Receipt Date: 20051013
  Transmission Date: 20060501
  Serious: Yes (Other)
  Sender: FDA-Public Use
  Company Number: US-JNJFOC-20050105996

PATIENT
  Sex: Female
  Weight: 58.97 kg

DRUGS (3)
  1. REMICADE [Suspect]
     Route: 042
  2. REMICADE [Suspect]
     Indication: RHEUMATOID ARTHRITIS
     Route: 042
  3. METHOTREXATE [Concomitant]

REACTIONS (8)
  - DEHYDRATION [None]
  - FEELING HOT AND COLD [None]
  - KIDNEY RUPTURE [None]
  - LEUKOPLAKIA [None]
  - MALAISE [None]
  - MOUNTAIN SICKNESS ACUTE [None]
  - NAUSEA [None]
  - VISION BLURRED [None]
